FAERS Safety Report 25431458 (Version 1)
Quarter: 2025Q2

REPORT INFORMATION
  Report Type: Spontaneous
  Country: PH (occurrence: PH)
  Receive Date: 20250613
  Receipt Date: 20250613
  Transmission Date: 20250717
  Serious: Yes (Death, Other)
  Sender: BRISTOL-MYERS SQUIBB COMPANY
  Company Number: PH-BRISTOL-MYERS SQUIBB COMPANY-2025-080063

PATIENT
  Age: 24 Year
  Sex: Male

DRUGS (1)
  1. SPRYCEL [Suspect]
     Active Substance: DASATINIB
     Indication: Chronic myeloid leukaemia

REACTIONS (6)
  - Haemorrhagic stroke [Fatal]
  - Blast crisis in myelogenous leukaemia [Fatal]
  - Thrombocytopenia [Fatal]
  - Pneumonia [Fatal]
  - Off label use [Unknown]
  - Brain herniation [Fatal]
